FAERS Safety Report 9870567 (Version 2)
Quarter: 2014Q2

REPORT INFORMATION
  Report Type: Report from Study
  Country: BR (occurrence: BR)
  Receive Date: 20140205
  Receipt Date: 20140421
  Transmission Date: 20141212
  Serious: Yes (Other)
  Sender: FDA-Public Use
  Company Number: PHHY2014BR012047

PATIENT
  Sex: Male
  Weight: 107 kg

DRUGS (1)
  1. OMNITROPE [Suspect]
     Indication: DRUG ABUSE
     Dosage: 0.4 MG, QD
     Route: 058
     Dates: start: 201311

REACTIONS (2)
  - Drug abuse [Unknown]
  - Device issue [Unknown]
